FAERS Safety Report 6190013-4 (Version None)
Quarter: 2009Q2

REPORT INFORMATION
  Report Type: 
  Country: None (occurrence: None)
  Receive Date: 20090514
  Receipt Date: 20090507
  Transmission Date: 20091009
  Serious: Yes (Other)
  Sender: FDA-Public Use
  Company Number: PHHY2009JP17726

PATIENT
  Sex: Male

DRUGS (3)
  1. CYCLOSPORINE [Suspect]
     Indication: NEPHROTIC SYNDROME
     Route: 048
  2. ENDOXAN [Suspect]
     Indication: NEPHROTIC SYNDROME
  3. METHYLPREDNISOLONE 4MG TAB [Suspect]
     Indication: NEPHROTIC SYNDROME

REACTIONS (1)
  - GROWTH HORMONE DEFICIENCY [None]
